FAERS Safety Report 21209829 (Version 1)
Quarter: 2022Q3

REPORT INFORMATION
  Report Type: Spontaneous
  Country: JP (occurrence: JP)
  Receive Date: 20220813
  Receipt Date: 20220813
  Transmission Date: 20221027
  Serious: Yes (Other)
  Sender: FDA-Public Use
  Company Number: JP-AMGEN-JPNSP2022136584

PATIENT

DRUGS (1)
  1. OTEZLA [Suspect]
     Active Substance: APREMILAST
     Indication: Product used for unknown indication
     Dosage: UNK
     Route: 048

REACTIONS (1)
  - Oesophageal operation [Unknown]
